FAERS Safety Report 9847700 (Version 1)
Quarter: 2014Q1

REPORT INFORMATION
  Report Type: Spontaneous
  Country: US (occurrence: US)
  Receive Date: 20140128
  Receipt Date: 20140128
  Transmission Date: 20141002
  Serious: No
  Sender: FDA-Public Use
  Company Number: US-BIOGENIDEC-2014BI007503

PATIENT
  Sex: Male

DRUGS (1)
  1. AVONEX [Suspect]
     Indication: MULTIPLE SCLEROSIS
     Route: 030
     Dates: start: 20131226

REACTIONS (4)
  - Ear infection [Recovered/Resolved]
  - Lymph node pain [Recovered/Resolved]
  - Lymphadenopathy [Unknown]
  - Chest discomfort [Recovered/Resolved]
